FAERS Safety Report 15109033 (Version 2)
Quarter: 2019Q1

REPORT INFORMATION
  Report Type: Report from Study
  Country: IT (occurrence: IT)
  Receive Date: 20180705
  Receipt Date: 20190320
  Transmission Date: 20190417
  Serious: Yes (Other)
  Sender: FDA-Public Use
  Company Number: IT-ROCHE-2148662

PATIENT
  Age: 60 Year
  Sex: Male

DRUGS (5)
  1. BACLOFEN. [Concomitant]
     Active Substance: BACLOFEN
     Indication: MUSCLE SPASTICITY
     Dosage: ONGOING
     Route: 048
  2. CARDIOASPIRIN [Concomitant]
     Active Substance: ASPIRIN
     Indication: HYPERTENSION
     Route: 065
  3. TRIATEC (ITALY) [Concomitant]
     Active Substance: RAMIPRIL
     Indication: HYPERTENSION
     Dosage: ONGOING
     Route: 048
  4. OCRELIZUMAB. [Suspect]
     Active Substance: OCRELIZUMAB
     Indication: PRIMARY PROGRESSIVE MULTIPLE SCLEROSIS
     Dosage: ONGOING
     Route: 042
     Dates: start: 20180111
  5. ESKIM [Concomitant]
     Active Substance: OMEGA-3 FATTY ACIDS
     Indication: LIPIDS INCREASED
     Route: 048

REACTIONS (4)
  - Rib fracture [Unknown]
  - Influenza [Recovered/Resolved]
  - Periodontitis [Recovering/Resolving]
  - Bronchitis [Recovered/Resolved]

NARRATIVE: CASE EVENT DATE: 20180210
